FAERS Safety Report 9920833 (Version 1)
Quarter: 2014Q1

REPORT INFORMATION
  Report Type: Report from Study
  Country: US (occurrence: US)
  Receive Date: 20140225
  Receipt Date: 20140225
  Transmission Date: 20141002
  Serious: Yes (Other)
  Sender: FDA-Public Use
  Company Number: US-ROCHE-1337718

PATIENT
  Age: 78 Year
  Sex: Male

DRUGS (6)
  1. LUCENTIS [Suspect]
     Indication: VENOUS OCCLUSION
     Dosage: OS
     Route: 050
     Dates: start: 20100504
  2. LUCENTIS [Suspect]
     Indication: MACULAR DEGENERATION
  3. AVASTIN [Suspect]
     Indication: RETINAL DISORDER
     Route: 065
     Dates: start: 200901
  4. MICARDIS [Concomitant]
     Route: 048
     Dates: start: 20100504
  5. RESTORIL (UNITED STATES) [Concomitant]
     Dosage: AT HS
     Route: 048
     Dates: start: 20100504
  6. TENORETIC [Concomitant]
     Dosage: 50MG-25MG
     Route: 048

REACTIONS (6)
  - Cystoid macular oedema [Unknown]
  - Cataract nuclear [Unknown]
  - Macular fibrosis [Unknown]
  - Vitreous detachment [Unknown]
  - Off label use [Unknown]
  - Drug ineffective [Unknown]
